FAERS Safety Report 14332074 (Version 2)
Quarter: 2018Q1

REPORT INFORMATION
  Report Type: Spontaneous
  Country: ES (occurrence: ES)
  Receive Date: 20171228
  Receipt Date: 20180123
  Transmission Date: 20180509
  Serious: Yes (Hospitalization, Other)
  Sender: FDA-Public Use
  Company Number: ES-AUROBINDO-AUR-APL-2017-47436

PATIENT
  Age: 11 Year
  Sex: Male

DRUGS (3)
  1. RISPERIDONE FILM-COATED TABLETS [Suspect]
     Active Substance: RISPERIDONE
     Indication: PRODUCT USED FOR UNKNOWN INDICATION
     Dosage: UNK
     Route: 065
  2. ARIPIPRAZOLE TABLETS [Suspect]
     Active Substance: ARIPIPRAZOLE
     Indication: PRODUCT USED FOR UNKNOWN INDICATION
     Dosage: UNK ()
     Route: 065
  3. RISPERIDONE FILM-COATED TABLETS [Suspect]
     Active Substance: RISPERIDONE
     Dosage: UNK
     Route: 065

REACTIONS (3)
  - Off label use [Unknown]
  - Dyskinesia [Recovered/Resolved]
  - Autism spectrum disorder [Recovered/Resolved]
